FAERS Safety Report 15410758 (Version 1)
Quarter: 2018Q3

REPORT INFORMATION
  Report Type: Spontaneous
  Country: DE (occurrence: DE)
  Receive Date: 20180921
  Receipt Date: 20180921
  Transmission Date: 20181010
  Serious: Yes (Other)
  Sender: FDA-Public Use
  Company Number: DE-ROCHE-2186037

PATIENT
  Age: 80 Year
  Sex: Female

DRUGS (10)
  1. SECUKINUMAB. [Concomitant]
     Active Substance: SECUKINUMAB
     Route: 065
     Dates: start: 20121204, end: 20150128
  2. METHOTREXATE. [Suspect]
     Active Substance: METHOTREXATE
     Indication: RHEUMATOID ARTHRITIS
     Route: 058
     Dates: start: 20121204
  3. METHOTREXATE. [Suspect]
     Active Substance: METHOTREXATE
     Route: 058
     Dates: start: 201507, end: 20160108
  4. ORENCIA [Concomitant]
     Active Substance: ABATACEPT
  5. ROACTEMRA [Suspect]
     Active Substance: TOCILIZUMAB
     Dosage: MOST RECENT DOSE 08/JAN/2016
     Route: 058
     Dates: start: 201507
  6. ROACTEMRA [Suspect]
     Active Substance: TOCILIZUMAB
     Route: 058
     Dates: start: 201504, end: 20150617
  7. ROACTEMRA [Suspect]
     Active Substance: TOCILIZUMAB
     Indication: RHEUMATOID ARTHRITIS
     Route: 058
     Dates: start: 20150313, end: 20150428
  8. PREDNISOLONE. [Concomitant]
     Active Substance: PREDNISOLONE
  9. METHOTREXATE. [Suspect]
     Active Substance: METHOTREXATE
     Route: 058
     Dates: start: 20150313, end: 20150428
  10. METHOTREXATE. [Suspect]
     Active Substance: METHOTREXATE
     Route: 058
     Dates: start: 201504, end: 20150617

REACTIONS (7)
  - Drug ineffective [Unknown]
  - Spinal fracture [Unknown]
  - Respiratory tract infection [Unknown]
  - Spinal pain [Unknown]
  - Spondylolisthesis [Unknown]
  - Rheumatoid nodule [Unknown]
  - Infected fistula [Unknown]
